APPROVED DRUG PRODUCT: POTASSIUM CHLORIDE
Active Ingredient: POTASSIUM CHLORIDE
Strength: 2MEQ/ML
Dosage Form/Route: INJECTABLE;INJECTION
Application: A087885 | Product #001
Applicant: ABRAXIS PHARMACEUTICAL PRODUCTS
Approved: Feb 3, 1983 | RLD: No | RS: No | Type: DISCN